FAERS Safety Report 18655870 (Version 1)
Quarter: 2020Q4

REPORT INFORMATION
  Report Type: Spontaneous
  Country: BG (occurrence: BG)
  Receive Date: 20201223
  Receipt Date: 20201223
  Transmission Date: 20210114
  Serious: Yes (Other)
  Sender: FDA-Public Use
  Company Number: BG-MYLANLABS-2020M1104028

PATIENT
  Age: 65 Year
  Sex: Female

DRUGS (5)
  1. VITAMIN C [Concomitant]
     Active Substance: ASCORBIC ACID
     Indication: HAEMORRHAGE
     Dosage: 2 DOSAGE FORM, TID
     Route: 048
     Dates: start: 20201212, end: 20201214
  2. NOLIPREL FORTE [Concomitant]
     Indication: HYPERTENSION
     Dosage: 1 DOSAGE FORM, QD
     Route: 048
     Dates: start: 2017
  3. URO VAXOM [Concomitant]
     Active Substance: ESCHERICHIA COLI
     Indication: CYSTITIS
     Dosage: 6 MILLIGRAM
     Route: 048
  4. KLACID SR [Suspect]
     Active Substance: CLARITHROMYCIN
     Indication: COVID-19
     Dosage: 500 MG (1 TABLET QD (08-DEC-2020); 1 TABLET BID (09-DEC-2020); 1 TABLET QD (AS OF 10-DEC-2020))
     Route: 048
     Dates: start: 20201208, end: 20201214
  5. ASPIRIN PROTECT [Suspect]
     Active Substance: ASPIRIN
     Indication: COVID-19
     Dosage: 100 MILLIGRAM, QD
     Route: 048
     Dates: start: 20201208, end: 20201211

REACTIONS (3)
  - Haemorrhage [Recovered/Resolved]
  - Abnormal dreams [Recovered/Resolved]
  - Off label use [Unknown]

NARRATIVE: CASE EVENT DATE: 20201208
